FAERS Safety Report 7919471-9 (Version None)
Quarter: 2011Q4

REPORT INFORMATION
  Report Type: 
  Country: None (occurrence: None)
  Receive Date: 20111117
  Receipt Date: 20111116
  Transmission Date: 20120403
  Serious: Yes (Other)
  Sender: FDA-Public Use
  Company Number: US-PFIZER INC-2011143966

PATIENT
  Sex: Male

DRUGS (2)
  1. CHANTIX [Suspect]
     Indication: SMOKING CESSATION THERAPY
     Dosage: UNK
     Dates: start: 20071101, end: 20080301
  2. CHANTIX [Suspect]
     Dosage: UNK
     Dates: start: 20090501, end: 20091101

REACTIONS (4)
  - SUICIDAL IDEATION [None]
  - ANXIETY [None]
  - ANGER [None]
  - DEPRESSION [None]
